FAERS Safety Report 9509033 (Version 1)
Quarter: 2013Q3

REPORT INFORMATION
  Report Type: Spontaneous
  Country: US (occurrence: US)
  Receive Date: 20130909
  Receipt Date: 20130909
  Transmission Date: 20140515
  Serious: No
  Sender: FDA-Public Use
  Company Number: US-PFIZER INC-2013256559

PATIENT
  Sex: Female

DRUGS (1)
  1. LEVOXYL [Suspect]
     Dosage: 100 UG, 1X/DAY
     Route: 048

REACTIONS (3)
  - Fatigue [Unknown]
  - Hearing impaired [Unknown]
  - Visual impairment [Unknown]
